FAERS Safety Report 7039409-9 (Version None)
Quarter: 2010Q3

REPORT INFORMATION
  Report Type: 
  Country: None (occurrence: None)
  Receive Date: 20100929
  Receipt Date: 20100601
  Transmission Date: 20110219
  Serious: No
  Sender: FDA-Public Use
  Company Number: US-WYE-H15129010

PATIENT
  Age: 75 Year
  Sex: Female
  Weight: 64.92 kg

DRUGS (4)
  1. PRISTIQ [Suspect]
     Indication: DEPRESSION
     Dosage: 50 MG 1X PER 1 DAY, ORAL
     Route: 048
     Dates: start: 20100104
  2. SYNTHROID [Concomitant]
  3. NASONEX [Concomitant]
  4. PRILOSEC (OMEPRAZOLE) [Concomitant]

REACTIONS (2)
  - INSOMNIA [None]
  - NAUSEA [None]
